FAERS Safety Report 4809861-5 (Version None)
Quarter: 2005Q4

REPORT INFORMATION
  Report Type: 
  Country: None (occurrence: None)
  Receive Date: 20051024
  Receipt Date: 20051024
  Transmission Date: 20060501
  Serious: Yes (Life-Threatening)
  Sender: FDA-Public Use
  Company Number: None

PATIENT
  Age: 14 Year
  Sex: Female
  Weight: 40.1 kg

DRUGS (1)
  1. METHOTREXATE [Suspect]
     Indication: BONE SARCOMA
     Dosage: 16 GMS OD FOR 2 DAYS IV
     Route: 042
     Dates: start: 20051018, end: 20051018

REACTIONS (11)
  - COAGULOPATHY [None]
  - DIALYSIS [None]
  - ELECTROLYTE IMBALANCE [None]
  - HEPATOMEGALY [None]
  - HYPERTENSION [None]
  - HYPOTENSION [None]
  - LETHARGY [None]
  - NO THERAPEUTIC RESPONSE [None]
  - RENAL FAILURE ACUTE [None]
  - RESPIRATORY DISTRESS [None]
  - WEIGHT INCREASED [None]
